FAERS Safety Report 22335762 (Version 12)
Quarter: 2024Q3

REPORT INFORMATION
  Report Type: Spontaneous
  Country: DE (occurrence: DE)
  Receive Date: 20230518
  Receipt Date: 20240802
  Transmission Date: 20241017
  Serious: Yes (Life-Threatening, Other)
  Sender: SANOFI AVENTIS
  Company Number: None

PATIENT
  Age: 86 Year
  Sex: Female
  Weight: 56 kg

DRUGS (58)
  1. ASPIRIN [Suspect]
     Active Substance: ASPIRIN
     Indication: Coagulopathy
     Dosage: 100 MG, QD
     Route: 048
     Dates: start: 20000828, end: 20000831
  2. ASPIRIN [Suspect]
     Active Substance: ASPIRIN
     Dosage: 100 MG, QD
     Route: 048
     Dates: start: 20000914, end: 20000917
  3. DIAZEPAM [Suspect]
     Active Substance: DIAZEPAM
     Indication: Sedative therapy
     Dosage: UNK
     Route: 042
     Dates: start: 20000913, end: 20000913
  4. NOVALGIN (METAMIZOLE SODIUM) [Suspect]
     Active Substance: METAMIZOLE SODIUM
     Indication: Pain
     Dosage: 20 GTT DROPS, QD
     Route: 048
     Dates: start: 20000820, end: 20000917
  5. NOVALGIN (METAMIZOLE SODIUM) [Suspect]
     Active Substance: METAMIZOLE SODIUM
     Indication: General symptom
     Dosage: UNK
     Route: 048
  6. NOVALGIN (METAMIZOLE SODIUM) [Suspect]
     Active Substance: METAMIZOLE SODIUM
     Indication: Thrombosis prophylaxis
  7. LIDOCAINE HYDROCHLORIDE [Suspect]
     Active Substance: LIDOCAINE HYDROCHLORIDE
     Indication: Local anaesthesia
     Dosage: UNK
     Route: 058
     Dates: start: 20000913, end: 20000913
  8. PLAVIX [Suspect]
     Active Substance: CLOPIDOGREL BISULFATE
     Indication: Coagulopathy
     Dosage: 75 MG, QD
     Route: 048
     Dates: start: 20000913, end: 20000917
  9. PLAVIX [Suspect]
     Active Substance: CLOPIDOGREL BISULFATE
     Indication: Thrombosis prophylaxis
  10. NORTRIPTYLINE [Suspect]
     Active Substance: NORTRIPTYLINE
     Indication: Coronary artery disease
     Dosage: 75 MG, QD
     Route: 042
     Dates: start: 20000913, end: 20000913
  11. GLYBURIDE [Suspect]
     Active Substance: GLYBURIDE
     Indication: Diabetes mellitus
     Dosage: 3 DF
     Route: 048
     Dates: start: 20000820, end: 20000917
  12. OMEPRAZOLE [Suspect]
     Active Substance: OMEPRAZOLE
     Indication: Prophylaxis against gastrointestinal ulcer
     Dosage: 20 MG, QD
     Route: 048
     Dates: start: 20000820, end: 20000917
  13. MOLSIDOMINE [Suspect]
     Active Substance: MOLSIDOMINE
     Indication: Coronary artery disease
     Dosage: 8 MG, QD
     Route: 048
     Dates: start: 20000820, end: 20000914
  14. LORMETAZEPAM [Suspect]
     Active Substance: LORMETAZEPAM
     Indication: Sedative therapy
     Dosage: 2 DF, QD, (SUSPENSION AEROSOL)
     Route: 048
     Dates: start: 20000913, end: 20000913
  15. LORMETAZEPAM [Suspect]
     Active Substance: LORMETAZEPAM
     Dosage: 2 DF, QD, (SUSPENSION AEROSOL)
     Route: 048
     Dates: start: 20000913, end: 20000913
  16. OMEPRAZOLE MAGNESIUM [Suspect]
     Active Substance: OMEPRAZOLE MAGNESIUM
     Indication: Prophylaxis against gastrointestinal ulcer
     Dosage: 20 MG, QD
     Route: 048
     Dates: start: 20000820, end: 20000917
  17. NOREPINEPHRINE [Suspect]
     Active Substance: NOREPINEPHRINE\NOREPINEPHRINE BITARTRATE
     Indication: Coronary artery disease
     Dosage: UNK
     Route: 042
     Dates: start: 20000913, end: 20000913
  18. VIOXX [Suspect]
     Active Substance: ROFECOXIB
     Indication: Rheumatic disorder
     Dosage: 25 MG, QD
     Route: 048
     Dates: start: 20000907, end: 20000917
  19. VIOXX [Suspect]
     Active Substance: ROFECOXIB
     Indication: Rheumatic disorder
  20. CLONIDINE [Suspect]
     Active Substance: CLONIDINE
     Indication: Coronary artery disease
     Dosage: UNK
     Route: 042
     Dates: start: 20000913, end: 20000913
  21. CLONIDINE [Suspect]
     Active Substance: CLONIDINE
     Indication: Hypertension
     Dosage: 8 MG, QD
     Dates: start: 20000820, end: 20000914
  22. CLONIDINE [Suspect]
     Active Substance: CLONIDINE
     Dosage: UNK
     Route: 042
  23. PREDNISOLONE [Suspect]
     Active Substance: PREDNISOLONE
     Indication: Dermatitis bullous
     Dosage: 60 MG, QD
     Route: 048
     Dates: start: 20000820, end: 20000917
  24. PREDNISOLONE [Suspect]
     Active Substance: PREDNISOLONE
     Indication: Pemphigoid
     Dosage: 40 MG, QD
     Route: 048
  25. PREDNISOLONE [Suspect]
     Active Substance: PREDNISOLONE
     Dosage: 50 MG, QD
     Route: 048
  26. PREDNISOLONE [Suspect]
     Active Substance: PREDNISOLONE
     Dosage: 80 MG, QD
     Route: 048
  27. DALTEPARIN SODIUM [Suspect]
     Active Substance: DALTEPARIN SODIUM
     Indication: Coagulopathy
     Dosage: UNK
     Route: 058
     Dates: start: 20000820, end: 20000917
  28. DALTEPARIN SODIUM [Suspect]
     Active Substance: DALTEPARIN SODIUM
     Indication: Thrombosis prophylaxis
     Dosage: UNK
     Route: 058
  29. TORSEMIDE [Suspect]
     Active Substance: TORSEMIDE
     Indication: Cardiac failure
     Dosage: 5 MG, QD
     Route: 048
     Dates: start: 20000820, end: 20000917
  30. TORSEMIDE [Suspect]
     Active Substance: TORSEMIDE
     Dosage: 140 MG
  31. LIDOCAINE HYDROCHLORIDE [Suspect]
     Active Substance: LIDOCAINE HYDROCHLORIDE
     Indication: Local anaesthesia
     Dosage: UNK
     Route: 058
     Dates: start: 20000913, end: 20000913
  32. FENTANYL [Suspect]
     Active Substance: FENTANYL\FENTANYL CITRATE
     Indication: Pain
     Dosage: 1 DF, Q3D
     Route: 062
     Dates: start: 20000820, end: 20000916
  33. FENTANYL [Suspect]
     Active Substance: FENTANYL\FENTANYL CITRATE
     Dosage: 50 UG, QH; (50 MCG, MICROGRAMS PER INHALATION, 72 - EVERY HOUR)
     Route: 062
  34. FENTANYL [Suspect]
     Active Substance: FENTANYL\FENTANYL CITRATE
     Dosage: 125 UG, QH; (125 MICROGRAMS PER INHALATION)
     Route: 062
  35. FENTANYL [Suspect]
     Active Substance: FENTANYL\FENTANYL CITRATE
     Dosage: 150 UG, QH; (150 MICROGRAMS PER INHALATION, 72 - EVERY HOUR)
     Route: 062
     Dates: start: 20000820, end: 20000916
  36. ISOSORBIDE MONONITRATE [Suspect]
     Active Substance: ISOSORBIDE MONONITRATE
     Indication: Angina pectoris
     Dosage: 1 DF, QD
     Route: 048
     Dates: start: 20000820, end: 20000917
  37. INSULIN NOS [Suspect]
     Active Substance: INSULIN NOS
     Indication: Diabetes mellitus
     Dosage: SUBCUTANEOUS EXCEPT ON 13 SEP 2000 WHEN GIVEN INTRAVENOUSLY
     Route: 058
     Dates: start: 20000820, end: 20000917
  38. INSULIN NOS [Suspect]
     Active Substance: INSULIN NOS
     Dosage: SUBCUTANEOUS EXCEPT ON 13 SEP 2000 WHEN GIVEN INTRAVENOUSLY
     Route: 042
     Dates: start: 20000913, end: 20000913
  39. NOREPINEPHRINE [Suspect]
     Active Substance: NOREPINEPHRINE\NOREPINEPHRINE BITARTRATE
     Indication: Coronary artery disease
     Dosage: 3 DF
     Route: 042
     Dates: start: 20000913, end: 20000913
  40. CLEMASTINE FUMARATE [Suspect]
     Active Substance: CLEMASTINE FUMARATE
     Indication: Pemphigoid
     Dosage: 2 DF, QD
     Route: 048
     Dates: start: 20000820, end: 20000828
  41. CLEMASTINE FUMARATE [Suspect]
     Active Substance: CLEMASTINE FUMARATE
     Dosage: 4 DF
     Route: 048
     Dates: start: 20000820, end: 20000828
  42. ESTRIOL [Suspect]
     Active Substance: ESTRIOL
     Indication: Vulvovaginal disorder
     Dosage: 1 DF, QD
     Route: 067
     Dates: start: 20000820, end: 20000906
  43. COTRIM [Concomitant]
     Active Substance: SULFAMETHOXAZOLE\TRIMETHOPRIM
     Indication: Urinary tract infection
     Dosage: 1 DF, QD
     Route: 048
     Dates: start: 20000916, end: 20000917
  44. CALCIUM [Concomitant]
     Active Substance: CALCIUM
     Indication: Osteoporosis
     Dosage: 1 DF, QD
     Route: 048
     Dates: start: 20000820, end: 20000917
  45. MOLSIDOMINE [Concomitant]
     Active Substance: MOLSIDOMINE
     Indication: Coronary artery disease
     Dosage: 1 DF, QD
     Route: 048
     Dates: start: 20000820, end: 20000914
  46. CALCIUM CHLORIDE [Concomitant]
     Active Substance: CALCIUM CHLORIDE
     Indication: Fluid retention
     Dosage: UNK
     Route: 042
     Dates: start: 20000913, end: 20000914
  47. CALCIUM CHLORIDE [Concomitant]
     Active Substance: CALCIUM CHLORIDE
     Indication: Electrolyte depletion
  48. POTASSIUM CHLORIDE [Concomitant]
     Active Substance: POTASSIUM CHLORIDE
     Indication: Electrolyte depletion
     Dosage: UNK
     Route: 042
     Dates: start: 20000913, end: 20000914
  49. POTASSIUM CHLORIDE [Concomitant]
     Active Substance: POTASSIUM CHLORIDE
     Indication: Fluid retention
  50. OMEPRAZOLE MAGNESIUM [Concomitant]
     Active Substance: OMEPRAZOLE MAGNESIUM
     Indication: Prophylaxis against gastrointestinal ulcer
     Dosage: 20 MG, QD
     Route: 048
     Dates: start: 20000820, end: 20000917
  51. RINGER^S IRRIGATION [Concomitant]
     Indication: Electrolyte depletion
     Dosage: UNK
     Route: 042
     Dates: start: 20000913, end: 20000914
  52. DEXTROSE [Concomitant]
     Active Substance: DEXTROSE\DEXTROSE MONOHYDRATE
     Indication: Cardiovascular disorder
     Dosage: UNK
     Route: 042
     Dates: start: 20000913, end: 20000913
  53. DEXTROSE [Concomitant]
     Active Substance: DEXTROSE\DEXTROSE MONOHYDRATE
     Indication: Diabetes mellitus
  54. PREDNISONE [Concomitant]
     Active Substance: PREDNISONE
     Dosage: UNK
  55. SODIUM CHLORIDE [Concomitant]
     Active Substance: SODIUM CHLORIDE
     Indication: Electrolyte depletion
     Dosage: UNK
     Route: 042
     Dates: start: 20000913, end: 20000914
  56. CALCIUM GLUCONATE [Concomitant]
     Active Substance: CALCIUM GLUCONATE
     Indication: Osteoporosis
     Dosage: 1 DF, QD
     Route: 065
     Dates: start: 20000820, end: 20000917
  57. FENTANYL [Concomitant]
     Active Substance: FENTANYL\FENTANYL CITRATE
     Indication: Pain
     Dosage: 1 DF
     Route: 062
     Dates: start: 20000820, end: 20000916
  58. NOREPINEFRINE [Concomitant]
     Indication: Diabetes mellitus
     Dosage: UNK
     Route: 042
     Dates: start: 20000913, end: 20000913

REACTIONS (7)
  - Mucosal erosion [Recovered/Resolved]
  - Genital erosion [Recovered/Resolved]
  - Toxic epidermal necrolysis [Recovered/Resolved]
  - Erythema [Recovered/Resolved]
  - Blister [Recovered/Resolved]
  - Mouth ulceration [Recovered/Resolved]
  - Conjunctivitis [Recovered/Resolved]

NARRATIVE: CASE EVENT DATE: 20000916
